FAERS Safety Report 7508036-9 (Version None)
Quarter: 2011Q2

REPORT INFORMATION
  Report Type: 
  Country: None (occurrence: None)
  Receive Date: 20110519
  Receipt Date: 20110504
  Transmission Date: 20111010
  Serious: Yes (Hospitalization, Other)
  Sender: FDA-Public Use
  Company Number: 2011MA005419

PATIENT
  Age: 34 Year
  Sex: Female

DRUGS (1)
  1. PROPRANOLOL HYDROCHLORIDE [Suspect]
     Indication: MAJOR DEPRESSION

REACTIONS (11)
  - UNRESPONSIVE TO STIMULI [None]
  - BRADYCARDIA [None]
  - SINUS BRADYCARDIA [None]
  - TOXICITY TO VARIOUS AGENTS [None]
  - BUNDLE BRANCH BLOCK RIGHT [None]
  - HYPOPNOEA [None]
  - OVERDOSE [None]
  - ELECTROCARDIOGRAM ST SEGMENT ELEVATION [None]
  - ELECTROCARDIOGRAM ABNORMAL [None]
  - HYPOTENSION [None]
  - ELECTROCARDIOGRAM QRS COMPLEX PROLONGED [None]
